FAERS Safety Report 8122449-6 (Version None)
Quarter: 2012Q1

REPORT INFORMATION
  Report Type: 
  Country: None (occurrence: None)
  Receive Date: 20120208
  Receipt Date: 20120127
  Transmission Date: 20120608
  Serious: Yes (Hospitalization)
  Sender: FDA-Public Use
  Company Number: US-ELI_LILLY_AND_COMPANY-US201110006107

PATIENT
  Sex: Female

DRUGS (7)
  1. BENICAR HCT [Concomitant]
  2. AMITRIPTYLINE HCL [Concomitant]
     Indication: INSOMNIA
  3. FORTEO [Suspect]
     Dosage: 20 UG, QD
  4. PREVACID [Concomitant]
  5. DAYPRO [Concomitant]
  6. FORTEO [Suspect]
     Indication: OSTEOPOROSIS
     Dosage: 20 UG, QD
     Dates: start: 20110101
  7. FORTEO [Suspect]
     Dosage: 20 UG, QD

REACTIONS (3)
  - KNEE ARTHROPLASTY [None]
  - BLOOD URIC ACID INCREASED [None]
  - PAIN [None]
